FAERS Safety Report 7313321-X (Version None)
Quarter: 2011Q1

REPORT INFORMATION
  Report Type: 
  Country: None (occurrence: None)
  Receive Date: 20110225
  Receipt Date: 20101117
  Transmission Date: 20110831
  Serious: No
  Sender: FDA-Public Use
  Company Number: US-MYLANLABS-2010S1020227

PATIENT
  Age: 65 Year
  Sex: Male

DRUGS (11)
  1. BUMEX [Concomitant]
  2. AMIODARONE [Concomitant]
  3. RAMIPRIL [Concomitant]
  4. GLIMEPIRIDE [Concomitant]
  5. PLAVIX [Concomitant]
  6. METFORMIN HCL [Suspect]
     Indication: BLOOD GLUCOSE
     Route: 048
     Dates: start: 20100903, end: 20101101
  7. CRESTOR [Concomitant]
  8. VERAPAMIL [Concomitant]
  9. METFORMIN HCL [Suspect]
     Indication: DIABETES MELLITUS
     Route: 048
     Dates: start: 20100903, end: 20101101
  10. POTASSIUM [Concomitant]
  11. ISOSORBIDE DINITRATE [Concomitant]

REACTIONS (2)
  - DRUG INEFFECTIVE [None]
  - BLOOD GLUCOSE INCREASED [None]
